FAERS Safety Report 5921161-9 (Version None)
Quarter: 2008Q4

REPORT INFORMATION
  Report Type: 
  Country: None (occurrence: None)
  Receive Date: 20081016
  Receipt Date: 20081013
  Transmission Date: 20090506
  Serious: Yes (Other)
  Sender: FDA-Public Use
  Company Number: US-JNJCH-2008051901

PATIENT
  Age: 68 Year
  Sex: Female
  Weight: 68 kg

DRUGS (2)
  1. VISINE-A [Suspect]
     Indication: SEASONAL ALLERGY
     Dosage: TEXT:UNSPECIFIED DOSE 2 TIMES
     Route: 047
     Dates: start: 20080923, end: 20081013
  2. IBUPROFEN [Concomitant]
     Indication: ARTHRITIS
     Dosage: TEXT:UNSPECIFIED
     Route: 065

REACTIONS (1)
  - EYE IRRITATION [None]
